FAERS Safety Report 10420214 (Version 1)
Quarter: 2014Q3

REPORT INFORMATION
  Report Type: Report from Study
  Country: US (occurrence: None)
  Receive Date: 20140804
  Receipt Date: 20140804
  Transmission Date: 20150326
  Serious: Yes (Other)
  Sender: FDA-Public Use
  Company Number: 2013US008723

PATIENT
  Age: 31 Year
  Sex: Female

DRUGS (8)
  1. REQUIPT (REQUIPT) [Concomitant]
  2. VENTOLIN /00139501/ (SALBUTAMOL) [Concomitant]
  3. TOPAMAX [Concomitant]
     Active Substance: TOPIRAMATE
  4. PAXIL /00830802/ (PAROXETINE HYDROCHLORIDE) [Concomitant]
  5. PROAIR HFA [Concomitant]
     Active Substance: ALBUTEROL SULFATE
  6. PRILOSEC 00661201/ (OMEPRAZOLE) [Concomitant]
  7. GLASSIA [Suspect]
     Active Substance: .ALPHA.1-PROTEINASE INHIBITOR HUMAN
     Indication: ALPHA-1 ANTI-TRYPSIN DEFICIENCY
     Route: 042
     Dates: start: 20110711, end: 20130208
  8. HFA (HFA) [Concomitant]

REACTIONS (9)
  - Urine flow decreased [None]
  - Back pain [None]
  - Hypertension [None]
  - Convulsion [None]
  - Muscle twitching [None]
  - Somnolence [None]
  - Asthenia [None]
  - Fatigue [None]
  - Abdominal distension [None]

NARRATIVE: CASE EVENT DATE: 20130502
